FAERS Safety Report 17356004 (Version 2)
Quarter: 2020Q1

REPORT INFORMATION
  Report Type: Spontaneous
  Country: RO (occurrence: RO)
  Receive Date: 20200131
  Receipt Date: 20200213
  Transmission Date: 20200409
  Serious: Yes (Other)
  Sender: FDA-Public Use
  Company Number: RO-PFIZER INC-2020013595

PATIENT
  Age: 59 Year
  Sex: Male
  Weight: 65 kg

DRUGS (2)
  1. SUTENT [Suspect]
     Active Substance: SUNITINIB MALATE
     Indication: METASTATIC RENAL CELL CARCINOMA
     Dosage: 50 MG, CYCLIC (4 WEEKS AND 2 WEEKS BREAK)
     Route: 048
     Dates: start: 20180404, end: 20191224
  2. ARGININE [Concomitant]
     Active Substance: ARGININE
     Dosage: UNK

REACTIONS (3)
  - Neoplasm progression [Recovering/Resolving]
  - Second primary malignancy [Unknown]
  - Oesophageal neoplasm [Unknown]

NARRATIVE: CASE EVENT DATE: 201909
